FAERS Safety Report 21163658 (Version 2)
Quarter: 2022Q3

REPORT INFORMATION
  Report Type: Report from Study
  Country: DE (occurrence: DE)
  Receive Date: 20220802
  Receipt Date: 20220926
  Transmission Date: 20221027
  Serious: Yes (Hospitalization, Other)
  Sender: FDA-Public Use
  Company Number: DE-ACTELION-A-CH2019-199488

PATIENT
  Age: 56 Year
  Sex: Female
  Weight: 48 kg

DRUGS (19)
  1. OPSUMIT [Suspect]
     Active Substance: MACITENTAN
     Indication: Pulmonary arterial hypertension
     Dosage: 10 MG, QD
     Route: 048
     Dates: start: 20190705
  2. OPSUMIT [Suspect]
     Active Substance: MACITENTAN
     Route: 048
     Dates: start: 20190919
  3. REVATIO [Concomitant]
     Active Substance: SILDENAFIL CITRATE
     Indication: Pulmonary arterial hypertension
     Dosage: 60 MG, QD
     Route: 048
     Dates: start: 20190705
  4. OXYCODONE HYDROCHLORIDE [Concomitant]
     Active Substance: OXYCODONE HYDROCHLORIDE
     Dosage: UNK, SEMISYNTHETIC OPIOID
     Route: 048
     Dates: start: 20191030, end: 20191107
  5. METOCLOPRAMIDE [Concomitant]
     Active Substance: METOCLOPRAMIDE
     Indication: Nausea
     Dosage: UNK
     Route: 048
     Dates: start: 20191106, end: 20191107
  6. NOVALGIN (METAMIZOLE SODIUM) [Concomitant]
     Active Substance: METAMIZOLE SODIUM
     Indication: Analgesic therapy
     Dosage: UNK
     Route: 048
     Dates: start: 20191106, end: 20191107
  7. DYNEXIDIN [Concomitant]
     Indication: Bacterial infection
     Dosage: UNK
     Dates: start: 20191106, end: 20191107
  8. RIFAXIMIN [Concomitant]
     Active Substance: RIFAXIMIN
     Indication: Hepatic encephalopathy
     Dosage: UNK
     Route: 048
     Dates: start: 20131022
  9. PANTOPRAZOLE SODIUM [Concomitant]
     Active Substance: PANTOPRAZOLE SODIUM
     Indication: Dyspepsia
     Dosage: UNK
     Route: 048
  10. PROPRANOLOL [Concomitant]
     Active Substance: PROPRANOLOL HYDROCHLORIDE
     Indication: Hypertension
     Dosage: UNK
     Route: 048
  11. ZOLPIDEM [Concomitant]
     Active Substance: ZOLPIDEM TARTRATE
     Indication: Insomnia
     Dosage: UNK
     Route: 048
  12. ALDACTONE [Concomitant]
     Active Substance: SPIRONOLACTONE
     Indication: Diuretic therapy
     Dosage: UNK
     Route: 048
  13. TORSEMIDE [Concomitant]
     Active Substance: TORSEMIDE
     Indication: Diuretic therapy
     Dosage: UNK
     Route: 048
  14. ZINC ASPARTATE [Concomitant]
     Active Substance: ZINC ASPARTATE
     Indication: Zinc deficiency
     Dosage: UNK
     Route: 048
  15. PANCRELIPASE [Concomitant]
     Active Substance: PANCRELIPASE
     Indication: Pancreatic disorder
     Dosage: UNK
     Route: 048
  16. PANCRELIPASE [Concomitant]
     Active Substance: PANCRELIPASE
     Indication: Digestive enzyme abnormal
  17. LACTULOSE [Concomitant]
     Active Substance: LACTULOSE
     Indication: Constipation
     Dosage: UNK
     Route: 048
     Dates: start: 2021, end: 20210706
  18. HEPA MERZ [Concomitant]
     Indication: Ammonia abnormal
     Dosage: UNK
     Route: 048
  19. HEPA MERZ [Concomitant]
     Indication: Liver disorder

REACTIONS (8)
  - Bronchitis bacterial [Recovered/Resolved]
  - Orthognathic surgery [Recovering/Resolving]
  - Dyspnoea [Recovered/Resolved]
  - Cough [Recovered/Resolved]
  - C-reactive protein increased [Recovered/Resolved]
  - International normalised ratio increased [Unknown]
  - Hepatic mass [Recovering/Resolving]
  - Blood uric acid increased [Not Recovered/Not Resolved]

NARRATIVE: CASE EVENT DATE: 20191017
